FAERS Safety Report 4785824-3 (Version None)
Quarter: 2005Q3

REPORT INFORMATION
  Report Type: 
  Country: None (occurrence: None)
  Receive Date: 20050929
  Receipt Date: 20050916
  Transmission Date: 20060218
  Serious: Yes (Hospitalization)
  Sender: FDA-Public Use
  Company Number: 2005-US-00098

PATIENT
  Age: 44 Year
  Sex: Male

DRUGS (1)
  1. CLOZAPINE [Suspect]
     Indication: SCHIZOAFFECTIVE DISORDER
     Dosage: 300 MG, QD, ORAL
     Route: 048
     Dates: start: 20010401, end: 20050901

REACTIONS (3)
  - CARDIAC ARREST [None]
  - PNEUMONIA [None]
  - RESPIRATORY ARREST [None]
